FAERS Safety Report 17872212 (Version 1)
Quarter: 2020Q2

REPORT INFORMATION
  Report Type: Spontaneous
  Country: GR (occurrence: GR)
  Receive Date: 20200608
  Receipt Date: 20200608
  Transmission Date: 20200714
  Serious: Yes (Other)
  Sender: FDA-Public Use
  Company Number: GR-ELI_LILLY_AND_COMPANY-GR202005009275

PATIENT
  Age: 45 Year
  Sex: Female

DRUGS (3)
  1. ZYPREXA [Suspect]
     Active Substance: OLANZAPINE
     Indication: PHOBIA
     Dosage: 0.5 DOSAGE FORM, DAILY
     Route: 048
     Dates: start: 20200523
  2. CIPRALEX [Concomitant]
     Active Substance: ESCITALOPRAM OXALATE
     Indication: PHOBIA
     Dosage: 0.5 DOSAGE FORM, DAILY
     Route: 065
     Dates: start: 20200523
  3. XANAX [Concomitant]
     Active Substance: ALPRAZOLAM
     Indication: PHOBIA
     Dosage: UNK, PRN
     Route: 065

REACTIONS (4)
  - Blood pressure decreased [Recovered/Resolved]
  - Off label use [Not Recovered/Not Resolved]
  - Dizziness [Recovered/Resolved]
  - Syncope [Recovered/Resolved]

NARRATIVE: CASE EVENT DATE: 20200523
